FAERS Safety Report 9784585 (Version 4)
Quarter: 2014Q1

REPORT INFORMATION
  Report Type: Report from Study
  Country: US (occurrence: US)
  Receive Date: 20131226
  Receipt Date: 20140319
  Transmission Date: 20141002
  Serious: Yes (Hospitalization)
  Sender: FDA-Public Use
  Company Number: US-ABBVIE-13P-163-1181683-00

PATIENT
  Age: 52 Year
  Sex: Female
  Weight: 63.56 kg

DRUGS (5)
  1. HUMIRA [Suspect]
     Indication: COLITIS ULCERATIVE
     Dates: start: 201306, end: 201311
  2. HUMIRA [Suspect]
  3. COQ10 [Concomitant]
     Indication: PRODUCT USED FOR UNKNOWN INDICATION
  4. FLORA [Concomitant]
     Indication: PRODUCT USED FOR UNKNOWN INDICATION
  5. CALCIUM [Concomitant]
     Indication: PRODUCT USED FOR UNKNOWN INDICATION

REACTIONS (11)
  - Rectal haemorrhage [Not Recovered/Not Resolved]
  - Gastrointestinal infection [Recovering/Resolving]
  - Gastrointestinal ulcer [Recovering/Resolving]
  - Ulcer [Not Recovered/Not Resolved]
  - Abdominal pain [Recovering/Resolving]
  - Anal skin tags [Not Recovered/Not Resolved]
  - Gastrointestinal fistula [Unknown]
  - Pouchitis [Unknown]
  - Crohn^s disease [Unknown]
  - Device issue [Unknown]
  - Incorrect dose administered [Unknown]
